FAERS Safety Report 15313369 (Version 1)
Quarter: 2018Q4

REPORT INFORMATION
  Report Type: Spontaneous
  Country: US (occurrence: US)
  Receive Date: 20180823
  Receipt Date: 20180823
  Transmission Date: 20190204
  Serious: No
  Sender: FDA-Public Use
  Company Number: US-TEVA-2018-US-945214

PATIENT
  Sex: Female

DRUGS (1)
  1. HYDROXYCTAB-A (HYDROXYCHLOROQUINE) [Suspect]
     Active Substance: HYDROXYCHLOROQUINE
     Indication: ALOPECIA
     Route: 065
     Dates: start: 201806, end: 20180809

REACTIONS (10)
  - Rash [Unknown]
  - Flatulence [Unknown]
  - Hepatic enzyme increased [Unknown]
  - Abdominal pain upper [Unknown]
  - Blood thyroid stimulating hormone increased [Unknown]
  - Abdominal pain [Recovered/Resolved]
  - Pain [Unknown]
  - Lichen planus [Unknown]
  - Constipation [Unknown]
  - Vision blurred [Recovering/Resolving]

NARRATIVE: CASE EVENT DATE: 201807
